FAERS Safety Report 7200583-2 (Version None)
Quarter: 2010Q4

REPORT INFORMATION
  Report Type: 
  Country: None (occurrence: None)
  Receive Date: 20101228
  Receipt Date: 20101222
  Transmission Date: 20110411
  Serious: Yes (Other)
  Sender: FDA-Public Use
  Company Number: AU-PFIZER INC-AU-WYE-G06002010

PATIENT
  Age: 48 Year
  Sex: Female

DRUGS (4)
  1. ENBREL [Suspect]
     Indication: ARTHRALGIA
     Dosage: 50MG WEEKLY
     Dates: start: 20100301
  2. CELEBREX [Suspect]
     Indication: ARTHRALGIA
     Dosage: UNKNOWN
     Dates: start: 20100401
  3. CLARATYNE [Concomitant]
     Dosage: UNK
  4. PREDNISOLONE [Concomitant]
     Dosage: 50 MG, UNK

REACTIONS (6)
  - INJECTION SITE CELLULITIS [None]
  - INJECTION SITE ERYTHEMA [None]
  - INJECTION SITE MASS [None]
  - INJECTION SITE PRURITUS [None]
  - INJECTION SITE WARMTH [None]
  - RASH MORBILLIFORM [None]
